FAERS Safety Report 5685033-X (Version None)
Quarter: 2008Q1

REPORT INFORMATION
  Report Type: 
  Country: None (occurrence: None)
  Receive Date: 20080328
  Receipt Date: 19980721
  Transmission Date: 20080703
  Serious: Yes (Death, Other)
  Sender: FDA-Public Use
  Company Number: IT-ROCHE-103249

PATIENT
  Age: 53 Year
  Sex: Female

DRUGS (5)
  1. INVIRASE [Suspect]
     Indication: HIV INFECTION
     Route: 048
     Dates: start: 19970801, end: 19980710
  2. ZERIT [Suspect]
     Indication: HIV INFECTION
     Route: 048
     Dates: start: 19970801, end: 19980710
  3. EPIVIR [Suspect]
     Indication: HIV INFECTION
     Route: 048
     Dates: start: 19970801, end: 19980710
  4. BACTRIM [Concomitant]
     Route: 048
     Dates: start: 19970801, end: 19980710
  5. LASIX [Concomitant]
     Route: 048
     Dates: start: 19940201

REACTIONS (2)
  - DEATH [None]
  - LACTIC ACIDOSIS [None]
